FAERS Safety Report 14243275 (Version 2)
Quarter: 2017Q4

REPORT INFORMATION
  Report Type: Spontaneous
  Country: US (occurrence: US)
  Receive Date: 20171201
  Receipt Date: 20171201
  Transmission Date: 20180321
  Serious: Yes (Death, Hospitalization, Other)
  Sender: FDA-Public Use
  Company Number: US-TEVA-2017-US-826658

PATIENT
  Age: 61 Year
  Sex: Male

DRUGS (3)
  1. FENOFIBRATE. [Suspect]
     Active Substance: FENOFIBRATE
     Indication: HYPERTRIGLYCERIDAEMIA
     Dosage: 48MG DAILY
     Route: 065
  2. EXENATIDE. [Suspect]
     Active Substance: EXENATIDE
     Route: 065
  3. DOXAZOSIN [Suspect]
     Active Substance: DOXAZOSIN\DOXAZOSIN MESYLATE
     Route: 065

REACTIONS (5)
  - Renal failure [Fatal]
  - Cholelithiasis [Fatal]
  - Cholestasis [Fatal]
  - Cholestatic liver injury [Fatal]
  - Hepatic failure [Fatal]
